FAERS Safety Report 8083322-5 (Version None)
Quarter: 2012Q1

REPORT INFORMATION
  Report Type: 
  Country: None (occurrence: None)
  Receive Date: 20120127
  Receipt Date: 20110204
  Transmission Date: 20120608
  Serious: No
  Sender: FDA-Public Use
  Company Number: US-ABBOTT-11P-163-0702663-00

PATIENT
  Sex: Female

DRUGS (4)
  1. OXYCONTIN [Concomitant]
     Indication: PRODUCT USED FOR UNKNOWN INDICATION
  2. HUMIRA [Suspect]
     Indication: RHEUMATOID ARTHRITIS
     Route: 058
     Dates: start: 20110202
  3. VICOPROFEN [Concomitant]
     Indication: PRODUCT USED FOR UNKNOWN INDICATION
     Dosage: 7.5/200 EVERY 6 HOURS AS REQUIRED
  4. LABETALOL HCL [Concomitant]
     Indication: BLOOD PRESSURE INCREASED

REACTIONS (1)
  - INJECTION SITE HAEMATOMA [None]
